FAERS Safety Report 9245555 (Version 1)
Quarter: 2013Q1

REPORT INFORMATION
  Report Type: Spontaneous
  Country: US (occurrence: None)
  Receive Date: 20121130
  Receipt Date: 20121130
  Transmission Date: 20140127
  Serious: Yes (Hospitalization, Other)
  Sender: FDA-Public Use
  Company Number: 346418

PATIENT
  Age: 19 Year
  Sex: Female
  Weight: 59.4 kg

DRUGS (3)
  1. NOVOLOG FLEXPEN [Suspect]
     Indication: TYPE 1 DIABETES MELLITUS
     Route: 058
     Dates: start: 2006
  2. LANTUS (INSULIN GLARGINE) [Concomitant]
  3. NEXIUM [Concomitant]

REACTIONS (2)
  - Diabetic ketoacidosis [None]
  - Blood glucose increased [None]
